FAERS Safety Report 12354730 (Version 1)
Quarter: 2016Q2

REPORT INFORMATION
  Report Type: Spontaneous
  Country: None (occurrence: CN)
  Receive Date: 20160511
  Receipt Date: 20160511
  Transmission Date: 20160815
  Serious: Yes (Other)
  Sender: FDA-Public Use
  Company Number: CN-MERCK KGAA-1051839

PATIENT

DRUGS (1)
  1. NOVOTHYROX [Suspect]
     Active Substance: LEVOTHYROXINE SODIUM

REACTIONS (7)
  - Insomnia [None]
  - Renal impairment [None]
  - Liver function test abnormal [None]
  - Cardiac disorder [None]
  - Antibody test abnormal [None]
  - Alopecia [None]
  - Thyroid function test abnormal [None]
